FAERS Safety Report 21926111 (Version 1)
Quarter: 2023Q1

REPORT INFORMATION
  Report Type: Spontaneous
  Country: US (occurrence: None)
  Receive Date: 20230128
  Receipt Date: 20230128
  Transmission Date: 20230418
  Serious: No
  Sender: FDA-Public Use
  Company Number: None

PATIENT
  Sex: Female

DRUGS (1)
  1. SODIUM CHLORIDE [Suspect]
     Active Substance: SODIUM CHLORIDE
     Indication: Wound treatment
     Route: 061

REACTIONS (5)
  - Product container issue [None]
  - Product container seal issue [None]
  - Product sterility issue [None]
  - Product quality issue [None]
  - Swelling face [None]

NARRATIVE: CASE EVENT DATE: 20230128
